FAERS Safety Report 4934609-3 (Version None)
Quarter: 2006Q1

REPORT INFORMATION
  Report Type: 
  Country: None (occurrence: None)
  Receive Date: 20060307
  Receipt Date: 20030605
  Transmission Date: 20060701
  Serious: Yes (Death, Life-Threatening, Hospitalization, Disabling, Other)
  Sender: FDA-Public Use
  Company Number: US-MERCK-0306USA00762

PATIENT
  Age: 70 Year
  Sex: Male
  Weight: 70 kg

DRUGS (17)
  1. VIOXX [Suspect]
     Indication: ARTHRALGIA
     Route: 048
     Dates: start: 19991101, end: 20010426
  2. ALLOPURINOL [Concomitant]
     Route: 065
  3. PEPCID [Concomitant]
     Route: 065
  4. FLONASE [Concomitant]
     Route: 065
  5. MICRONASE [Concomitant]
     Route: 065
  6. LACTULOSE [Concomitant]
     Route: 065
  7. CARBIDOPA AND LEVODOPA [Concomitant]
     Route: 065
  8. PROBENECID [Concomitant]
     Route: 065
  9. QUININE SULFATE [Concomitant]
     Route: 065
  10. SELEGILINE [Concomitant]
     Route: 065
  11. TRAMADOL HYDROCHLORIDE [Concomitant]
     Route: 065
  12. BISACODYL [Concomitant]
     Route: 065
  13. COMPAZINE [Concomitant]
     Route: 065
  14. MYLANTA + MYLANTA DS [Concomitant]
     Route: 065
  15. ATENOLOL [Concomitant]
     Route: 065
  16. CHLORTHALIDONE [Concomitant]
     Route: 065
  17. DARVOCET [Concomitant]
     Route: 065

REACTIONS (37)
  - ANGINA PECTORIS [None]
  - AORTIC VALVE STENOSIS [None]
  - BLOOD GLUCOSE DECREASED [None]
  - BLOOD PRESSURE INCREASED [None]
  - CACHEXIA [None]
  - CARDIAC FAILURE CONGESTIVE [None]
  - CEREBROVASCULAR ACCIDENT [None]
  - CHEST DISCOMFORT [None]
  - CHEST PAIN [None]
  - CONVULSION [None]
  - CORONARY ARTERY DISEASE [None]
  - DEATH [None]
  - DECUBITUS ULCER [None]
  - DEHYDRATION [None]
  - DEPRESSION [None]
  - DRUG HYPERSENSITIVITY [None]
  - FALL [None]
  - GASTROENTERITIS VIRAL [None]
  - HYPOGLYCAEMIA [None]
  - HYPOVOLAEMIA [None]
  - MENINGITIS BACTERIAL [None]
  - MULTIPLE SYSTEM ATROPHY [None]
  - MYOCARDIAL INFARCTION [None]
  - MYOCARDIAL ISCHAEMIA [None]
  - ORTHOSTATIC HYPOTENSION [None]
  - PARKINSON'S DISEASE [None]
  - PNEUMONIA [None]
  - PULMONARY OEDEMA [None]
  - RED BLOOD CELL COUNT DECREASED [None]
  - RENAL FAILURE [None]
  - STAPHYLOCOCCAL INFECTION [None]
  - STAPHYLOCOCCAL SEPSIS [None]
  - SYNCOPE [None]
  - TOOTH LOSS [None]
  - URINARY TRACT INFECTION [None]
  - UROSEPSIS [None]
  - WOUND INFECTION STAPHYLOCOCCAL [None]
